FAERS Safety Report 5339221-2 (Version None)
Quarter: 2007Q2

REPORT INFORMATION
  Report Type: 
  Country: None (occurrence: None)
  Receive Date: 20070329
  Receipt Date: 20061010
  Transmission Date: 20071010
  Serious: Yes (Other)
  Sender: FDA-Public Use
  Company Number: 06-0129SU

PATIENT
  Age: 47 Year
  Sex: Male
  Weight: 66.6788 kg

DRUGS (2)
  1. SULAR [Suspect]
     Indication: HYPERTENSION
     Dosage: 20 MG, Q PM, PO
     Route: 048
  2. ALTACE [Concomitant]

REACTIONS (1)
  - SYNCOPE [None]
